FAERS Safety Report 23322632 (Version 1)
Quarter: 2023Q4

REPORT INFORMATION
  Report Type: Spontaneous
  Country: US (occurrence: US)
  Receive Date: 20231220
  Receipt Date: 20231220
  Transmission Date: 20240110
  Serious: No
  Sender: FDA-Public Use
  Company Number: US-GALDERMA-US2023015806

PATIENT

DRUGS (6)
  1. PROACTIV MD ADAPALENE ACNE TREATMENT [Suspect]
     Active Substance: ADAPALENE
     Indication: Scar
     Dosage: 1 DOSAGE FORM, QD
     Route: 061
     Dates: start: 202308, end: 202310
  2. Proactiv MD Ultra Gentle Cleanser [Concomitant]
     Indication: Scar
     Dosage: 1 DOSAGE FORM, BID
     Route: 061
     Dates: start: 202308, end: 202310
  3. Proactiv MD Ultra Hydrating Moisturizer [Concomitant]
     Indication: Scar
     Dosage: 1 DOSAGE FORM, BID
     Route: 061
     Dates: start: 202308, end: 202310
  4. COSMETICS [Concomitant]
     Active Substance: COSMETICS
     Indication: Scar
     Dosage: 1 DOSAGE FORM, BID
     Route: 061
     Dates: start: 202308, end: 202310
  5. COSMETICS [Concomitant]
     Active Substance: COSMETICS
     Indication: Scar
     Dosage: 1 DOSAGE FORM, BID
     Route: 061
     Dates: start: 202308, end: 202310
  6. WELLBUTRIN [Concomitant]
     Active Substance: BUPROPION HYDROCHLORIDE
     Indication: Product used for unknown indication

REACTIONS (3)
  - Acne [Recovering/Resolving]
  - Drug ineffective for unapproved indication [Recovered/Resolved]
  - Product use in unapproved indication [Recovered/Resolved]

NARRATIVE: CASE EVENT DATE: 20230801
